FAERS Safety Report 4389458-4 (Version None)
Quarter: 2004Q3

REPORT INFORMATION
  Report Type: 
  Country: None (occurrence: None)
  Receive Date: 20040702
  Receipt Date: 20040621
  Transmission Date: 20050211
  Serious: Yes (Death, Hospitalization)
  Sender: FDA-Public Use
  Company Number: PHEH2004US06746

PATIENT
  Age: 74 Year
  Sex: Male

DRUGS (1)
  1. CLOZARIL [Suspect]
     Indication: PARKINSON'S DISEASE
     Dosage: 37.5 MG/DAY
     Route: 048
     Dates: start: 20040427

REACTIONS (2)
  - PNEUMONIA [None]
  - UROSEPSIS [None]
